FAERS Safety Report 22086364 (Version 1)
Quarter: 2023Q1

REPORT INFORMATION
  Report Type: Spontaneous
  Country: CA (occurrence: CA)
  Receive Date: 20230312
  Receipt Date: 20230312
  Transmission Date: 20230417
  Serious: Yes (Other)
  Sender: FDA-Public Use
  Company Number: CA-HLS-202201092

PATIENT
  Sex: Male
  Weight: 94 kg

DRUGS (4)
  1. CLOZAPINE [Suspect]
     Active Substance: CLOZAPINE
     Indication: Product used for unknown indication
     Route: 065
  2. ABILIFY [Concomitant]
     Active Substance: ARIPIPRAZOLE
     Dosage: TABLETS DOSAGE FORM
     Route: 065
  3. CLOZAPINE [Suspect]
     Active Substance: CLOZAPINE
     Indication: Product used for unknown indication
     Route: 065
  4. CLOZAPINE [Suspect]
     Active Substance: CLOZAPINE
     Indication: Product used for unknown indication
     Dosage: 1 EVERY 1 WEEKS?TABLETS DOSAGE FORM?THERAPY DURATION: 29 DAYS
     Route: 065

REACTIONS (3)
  - Cardiomyopathy [Recovered/Resolved]
  - C-reactive protein increased [Recovered/Resolved]
  - Troponin increased [Recovered/Resolved]
